FAERS Safety Report 5818327-5 (Version None)
Quarter: 2008Q3

REPORT INFORMATION
  Report Type: 
  Country: None (occurrence: None)
  Receive Date: 20080718
  Receipt Date: 20080710
  Transmission Date: 20090109
  Serious: Yes (Death, Hospitalization)
  Sender: FDA-Public Use
  Company Number: TCI2008A02184

PATIENT
  Age: 62 Year
  Sex: Male
  Weight: 62 kg

DRUGS (8)
  1. LANSAP 800          (LANSOPRAZOLE, CLIRITHROMYCIN, AMOXICILLIN) (PREPA [Suspect]
     Indication: GASTRIC ULCER
     Dosage: 1 CARD (0.5 CARD, 2 IN1 D) PER ORAL
     Route: 048
     Dates: start: 20080414, end: 20080418
  2. LANSAP 800          (LANSOPRAZOLE, CLIRITHROMYCIN, AMOXICILLIN) (PREPA [Suspect]
     Indication: HELICOBACTER INFECTION
     Dosage: 1 CARD (0.5 CARD, 2 IN1 D) PER ORAL
     Route: 048
     Dates: start: 20080414, end: 20080418
  3. NU LOTAN    (LOSARTAN POTASSIUM) (TABLETS) [Concomitant]
  4. SELBEX           (TEPRENONE) (CAPSULES) [Concomitant]
  5. LEVOTHYROXINE SODIUM [Concomitant]
  6. ENTERONON-R   (ENTERONON R) (PREPARATION FOR ORAL USE (NOS)) [Concomitant]
  7. TANTARIL      (IMIDAPRIL HYDROCHLORIDE) (TABLETS) [Concomitant]
  8. CALTAN   (PRECIPITATED CALCIUM CARBONATE) (TABLETS) [Concomitant]

REACTIONS (16)
  - ACTIVATED PARTIAL THROMBOPLASTIN TIME PROLONGED [None]
  - ALANINE AMINOTRANSFERASE INCREASED [None]
  - ASPARTATE AMINOTRANSFERASE INCREASED [None]
  - BLOOD CREATINE PHOSPHOKINASE INCREASED [None]
  - BLOOD LACTATE DEHYDROGENASE INCREASED [None]
  - DEPRESSED LEVEL OF CONSCIOUSNESS [None]
  - DISSEMINATED INTRAVASCULAR COAGULATION [None]
  - DYSPNOEA [None]
  - GAMMA-GLUTAMYLTRANSFERASE INCREASED [None]
  - GASTROENTERITIS STAPHYLOCOCCAL [None]
  - HAEMODIALYSIS [None]
  - HYPOVOLAEMIC SHOCK [None]
  - INTERNATIONAL NORMALISED RATIO INCREASED [None]
  - MULTI-ORGAN FAILURE [None]
  - PLATELET COUNT DECREASED [None]
  - WHITE BLOOD CELL COUNT DECREASED [None]
